FAERS Safety Report 7233683-1 (Version None)
Quarter: 2011Q1

REPORT INFORMATION
  Report Type: 
  Country: None (occurrence: None)
  Receive Date: 20110119
  Receipt Date: 20100127
  Transmission Date: 20110831
  Serious: Yes (Hospitalization)
  Sender: FDA-Public Use
  Company Number: US-TEVA-222361USA

PATIENT
  Sex: Male

DRUGS (2)
  1. COPAXONE [Suspect]
     Indication: MULTIPLE SCLEROSIS
     Route: 058
     Dates: end: 20070101
  2. INTERFERON BETA NOS [Concomitant]
     Indication: MULTIPLE SCLEROSIS
     Route: 030
     Dates: start: 20061205, end: 20070101

REACTIONS (5)
  - HYPERHIDROSIS [None]
  - ABDOMINAL PAIN LOWER [None]
  - HYPERSENSITIVITY [None]
  - CHEST PAIN [None]
  - DYSPNOEA [None]
